FAERS Safety Report 12720118 (Version 6)
Quarter: 2017Q2

REPORT INFORMATION
  Report Type: Spontaneous
  Country: US (occurrence: US)
  Receive Date: 20160907
  Receipt Date: 20170419
  Transmission Date: 20170830
  Serious: Yes (Other)
  Sender: FDA-Public Use
  Company Number: US-PFIZER INC-2016413273

PATIENT
  Age: 73 Year
  Sex: Female

DRUGS (1)
  1. XELJANZ XR [Suspect]
     Active Substance: TOFACITINIB CITRATE
     Indication: RHEUMATOID ARTHRITIS
     Dosage: 11 MG, UNK
     Route: 048

REACTIONS (10)
  - Malaise [Unknown]
  - Back injury [Unknown]
  - Cystitis [Unknown]
  - Kidney infection [Unknown]
  - Mobility decreased [Unknown]
  - Balance disorder [Unknown]
  - Weight decreased [Unknown]
  - Anxiety [Unknown]
  - Fall [Unknown]
  - Pain [Unknown]
